FAERS Safety Report 6371550-6 (Version None)
Quarter: 2009Q3

REPORT INFORMATION
  Report Type: 
  Country: None (occurrence: None)
  Receive Date: 20090923
  Receipt Date: 20080616
  Transmission Date: 20100115
  Serious: No
  Sender: FDA-Public Use
  Company Number: US-ASTRAZENECA-2007UW19258

PATIENT
  Age: 15885 Day
  Sex: Female
  Weight: 109.8 kg

DRUGS (25)
  1. SEROQUEL [Suspect]
     Indication: BIPOLAR DISORDER
     Dosage: 50 MG - 400 MG DAILY
     Route: 048
     Dates: start: 20001103
  2. SEROQUEL [Suspect]
     Indication: SLEEP DISORDER
     Dosage: 50 MG - 400 MG DAILY
     Route: 048
     Dates: start: 20001103
  3. SEROQUEL [Suspect]
     Route: 048
  4. SEROQUEL [Suspect]
     Route: 048
  5. TRICOR [Concomitant]
     Dates: start: 20050822
  6. BUMETANIDE [Concomitant]
     Dates: start: 20050822
  7. SODIUM LEVOTHYROXINE [Concomitant]
     Dates: start: 20050822
  8. TOPAMAX [Concomitant]
     Route: 048
     Dates: start: 20040701
  9. LEXAPRO [Concomitant]
     Route: 048
     Dates: start: 20050822
  10. REQUIP [Concomitant]
     Indication: RESTLESS LEGS SYNDROME
     Dosage: 0.5 MG - 2 MG DAILY
     Route: 048
     Dates: start: 20051230
  11. VALIUM [Concomitant]
     Route: 048
     Dates: start: 20060508, end: 20060524
  12. SOMA [Concomitant]
     Route: 048
     Dates: start: 20060524
  13. BENADRYL [Concomitant]
     Indication: TREMOR
     Dates: start: 20060308
  14. DITROPAN XL [Concomitant]
     Route: 048
     Dates: start: 20050406
  15. SKELAXIN [Concomitant]
     Route: 048
     Dates: start: 20031021
  16. ZITHROMAX [Concomitant]
     Route: 048
     Dates: start: 20031021
  17. ESKALITH [Concomitant]
     Dosage: 600 MG - 900 MG DAILY
     Route: 048
     Dates: start: 19980827
  18. DEPAKOTE [Concomitant]
     Route: 048
     Dates: start: 19980827
  19. ZOLOFT [Concomitant]
     Route: 048
     Dates: start: 19980827
  20. ATIVAN [Concomitant]
     Dosage: 0.5 MG - 1 MG DAILY AT NIGHT
     Route: 048
     Dates: start: 20030729
  21. ARTANE [Concomitant]
     Route: 048
     Dates: start: 20050909
  22. COGENTIN [Concomitant]
     Dosage: 0.5 MG - 2 MG DAILY
     Dates: start: 20040701
  23. CARBATROL [Concomitant]
     Route: 048
     Dates: start: 20001103
  24. RISPERDAL [Concomitant]
     Route: 048
     Dates: start: 20001103
  25. TRILEPTAL [Concomitant]
     Dosage: 600 MG - 1200 MG DAILY
     Route: 048
     Dates: start: 20030729

REACTIONS (4)
  - ADVERSE DRUG REACTION [None]
  - DIABETES MELLITUS [None]
  - HYPOGLYCAEMIA [None]
  - OBESITY [None]
